FAERS Safety Report 21082323 (Version 1)
Quarter: 2022Q3

REPORT INFORMATION
  Report Type: Spontaneous
  Country: DE (occurrence: DE)
  Receive Date: 20220714
  Receipt Date: 20220714
  Transmission Date: 20221027
  Serious: Yes (Other)
  Sender: FDA-Public Use
  Company Number: None

PATIENT
  Age: 36 Year
  Sex: Male

DRUGS (4)
  1. METAMIZOLE [Suspect]
     Active Substance: METAMIZOLE
     Indication: Arthralgia
     Dosage: 20GTT, UNIT DOSE:500  MG
     Dates: start: 20211029, end: 20211029
  2. OXAZEPAM [Suspect]
     Active Substance: OXAZEPAM
     Indication: Alcohol withdrawal syndrome
     Dosage: UNIT DOSE :40  MG ,
     Dates: start: 20211029, end: 20211029
  3. CLONIDINE [Concomitant]
     Active Substance: CLONIDINE
     Indication: Product used for unknown indication
     Dosage: UNIT DOSE:300  MG , FREQUENCY : 1 DAYS
     Dates: start: 20211029, end: 20211029
  4. KEPPRA [Concomitant]
     Active Substance: LEVETIRACETAM
     Indication: Product used for unknown indication
     Dosage: UNIT DOSE:1000  MG , FREQUENCY : 1 DAYS
     Dates: start: 20211029, end: 20211029

REACTIONS (5)
  - Dermatitis allergic [Recovered/Resolved]
  - Rash [Recovered/Resolved]
  - Erythema [Recovered/Resolved]
  - Swelling face [Recovered/Resolved]
  - Pruritus [Recovered/Resolved]

NARRATIVE: CASE EVENT DATE: 20211029
